FAERS Safety Report 5592394-9 (Version None)
Quarter: 2007Q4

REPORT INFORMATION
  Report Type: 
  Country: None (occurrence: None)
  Receive Date: 20071215
  Receipt Date: 20071115
  Transmission Date: 20080405
  Serious: No
  Sender: FDA-Public Use
  Company Number: BDI-010588

PATIENT
  Sex: Female

DRUGS (1)
  1. MULTIHANCE [Suspect]
     Indication: NUCLEAR MAGNETIC RESONANCE IMAGING BRAIN
     Dosage: 14 ML ONCE IV
     Route: 042
     Dates: start: 20071113, end: 20071113

REACTIONS (3)
  - HYPERVENTILATION [None]
  - NAUSEA [None]
  - RETCHING [None]
